FAERS Safety Report 12456941 (Version 1)
Quarter: 2016Q2

REPORT INFORMATION
  Report Type: Spontaneous
  Country: US (occurrence: US)
  Receive Date: 20160610
  Receipt Date: 20160610
  Transmission Date: 20160815
  Serious: No
  Sender: FDA-Public Use
  Company Number: US-TARO-2016TAR00152

PATIENT

DRUGS (1)
  1. DIFLORASONE [Suspect]
     Active Substance: DIFLORASONE DIACETATE

REACTIONS (1)
  - Insomnia [Unknown]
